FAERS Safety Report 23151812 (Version 2)
Quarter: 2023Q4

REPORT INFORMATION
  Report Type: Spontaneous
  Country: JP (occurrence: JP)
  Receive Date: 20231107
  Receipt Date: 20231117
  Transmission Date: 20240110
  Serious: Yes (Other)
  Sender: FDA-Public Use
  Company Number: JP-BAXTER-2023BAX034733

PATIENT
  Age: 77 Year
  Sex: Female

DRUGS (1)
  1. DOXORUBICIN [Suspect]
     Active Substance: DOXORUBICIN
     Indication: Breast cancer
     Dosage: CUMULATIVE DOSE WAS 241 MG/M2
     Route: 065

REACTIONS (3)
  - Cardiac dysfunction [Unknown]
  - Dyspnoea exertional [Unknown]
  - Oedema peripheral [Unknown]
